FAERS Safety Report 25006657 (Version 1)
Quarter: 2025Q1

REPORT INFORMATION
  Report Type: Spontaneous
  Country: DE (occurrence: DE)
  Receive Date: 20250225
  Receipt Date: 20250225
  Transmission Date: 20250408
  Serious: Yes (Other)
  Sender: ASCEND THERAPEUTICS US, LLC
  Company Number: DE-Ascend Therapeutics US, LLC-2171736

PATIENT
  Age: 50 Year
  Sex: Female

DRUGS (14)
  1. ESTROGEL [Suspect]
     Active Substance: ESTRADIOL
     Indication: Hormone replacement therapy
     Dates: start: 20250118, end: 20250121
  2. PROGESTERONE [Suspect]
     Active Substance: PROGESTERONE
     Dates: start: 20250122
  3. DIENOGEST\ESTRADIOL VALERATE [Concomitant]
     Active Substance: DIENOGEST\ESTRADIOL VALERATE
  4. CHARIVA [Concomitant]
     Dates: end: 20250122
  5. ALLUNA [Concomitant]
     Dates: start: 20250131
  6. OPIPRAMOL [Concomitant]
     Active Substance: OPIPRAMOL
  7. ESOMEPRAZOLE [Concomitant]
     Active Substance: ESOMEPRAZOLE
  8. LEVOTHYROXINE [Concomitant]
     Active Substance: LEVOTHYROXINE
  9. NEUPRO [Concomitant]
     Active Substance: ROTIGOTINE
  10. PROGESTERONE [Suspect]
     Active Substance: PROGESTERONE
     Dates: start: 20250118, end: 202501
  11. ESTRADIOL [Suspect]
     Active Substance: ESTRADIOL
     Dates: start: 20250207
  12. ESTRADIOL [Suspect]
     Active Substance: ESTRADIOL
     Dates: start: 20250130, end: 20250206
  13. ESTRADIOL [Suspect]
     Active Substance: ESTRADIOL
     Dates: start: 20250122, end: 20250129
  14. ESTRADIOL [Suspect]
     Active Substance: ESTRADIOL
     Dates: start: 20250118, end: 20250121

REACTIONS (11)
  - Delirium [Not Recovered/Not Resolved]
  - Wrong technique in product usage process [Unknown]
  - Incorrect dose administered [Unknown]
  - Prescribed underdose [Unknown]
  - Somnolence [Not Recovered/Not Resolved]
  - Dysarthria [Not Recovered/Not Resolved]
  - Headache [Recovering/Resolving]
  - Insomnia [Not Recovered/Not Resolved]
  - Heart rate increased [Not Recovered/Not Resolved]
  - Feeling hot [Recovering/Resolving]
  - Head discomfort [Recovering/Resolving]

NARRATIVE: CASE EVENT DATE: 20250101
